FAERS Safety Report 7343464-6 (Version None)
Quarter: 2011Q1

REPORT INFORMATION
  Report Type: 
  Country: None (occurrence: None)
  Receive Date: 20110310
  Receipt Date: 20100119
  Transmission Date: 20110831
  Serious: No
  Sender: FDA-Public Use
  Company Number: A0840257A

PATIENT
  Age: 65 Year
  Sex: Male

DRUGS (2)
  1. NICOTINE POLACRILEX [Suspect]
  2. NICORETTE (MINT) [Suspect]

REACTIONS (3)
  - THROAT IRRITATION [None]
  - DRY THROAT [None]
  - VOCAL CORD DISORDER [None]
